FAERS Safety Report 25869895 (Version 1)
Quarter: 2025Q4

REPORT INFORMATION
  Report Type: Spontaneous
  Country: CN (occurrence: CN)
  Receive Date: 20251001
  Receipt Date: 20251001
  Transmission Date: 20260117
  Serious: Yes (Hospitalization)
  Sender: Haleon PLC
  Company Number: CN-HALEON-2265692

PATIENT
  Age: 29 Year
  Sex: Female
  Weight: 45 kg

DRUGS (3)
  1. ACETAMINOPHEN\CAFFEINE\CHLORPHENIRAMINE [Suspect]
     Active Substance: ACETAMINOPHEN\CAFFEINE\CHLORPHENIRAMINE
     Indication: Nasopharyngitis
     Route: 048
     Dates: start: 20250918, end: 20250925
  2. IBUPROFEN [Suspect]
     Active Substance: IBUPROFEN
     Indication: Nasopharyngitis
     Route: 048
     Dates: start: 20250918, end: 20250925
  3. HERBALS [Suspect]
     Active Substance: HERBALS
     Indication: Nasopharyngitis
     Dosage: TIME INTERVAL: 0.33333333 DAYS: PILLS
     Route: 048
     Dates: start: 20250918, end: 20250925

REACTIONS (6)
  - Petechiae [Unknown]
  - Drug eruption [Unknown]
  - Papule [Unknown]
  - Rash [Unknown]
  - Erythema [Unknown]
  - Pruritus [Unknown]

NARRATIVE: CASE EVENT DATE: 20250925
